FAERS Safety Report 5050041-9 (Version None)
Quarter: 2006Q2

REPORT INFORMATION
  Report Type: 
  Country: None (occurrence: None)
  Receive Date: 20060601
  Receipt Date: 20060214
  Transmission Date: 20061013
  Serious: No
  Sender: FDA-Public Use
  Company Number: US200602003049

PATIENT
  Age: 40 Year
  Sex: Male

DRUGS (23)
  1. CYMBALTA [Suspect]
     Indication: INTERVERTEBRAL DISC PROTRUSION
     Dosage: 30 MG, DAILY (1/D)
     Dates: start: 20060210
  2. WELLBUTRIN [Concomitant]
  3. DOCUSATE SODIUM (DOCUSATE SODIUM) [Concomitant]
  4. MELATONIN (MELATONIN UNKNOWN FORMULATION) [Concomitant]
  5. MULTIVITAMIN AND MINERAL SUPPLEMENT (MINERALS NOS, VITAMINS NOS) [Concomitant]
  6. OMEGA 3 (FISH OIL) [Concomitant]
  7. PREVACID [Concomitant]
  8. CYANOCOBALAMIN [Concomitant]
  9. METFORMIN (METFORMIN) [Concomitant]
  10. GINKGO BILOBA (GINKGO BILOBA) [Concomitant]
  11. VITAMIN E (VITAMIN E UNKNOWN MANUFACTURER) [Concomitant]
  12. ADDERALL (AMFETAMINE ASPARTATE, AMFETAMINE SULFATE, DEXAMFETAMINE SACC [Concomitant]
  13. BENICAR /USA/ (OLMESARTAN MEDOXOMIL) [Concomitant]
  14. BETACAROTENE (BETACAROTENE) [Concomitant]
  15. SAW PALMETTO (SERENOA REPENS) [Concomitant]
  16. CALCIUM (CALCIUM) [Concomitant]
  17. FOLIC ACID [Concomitant]
  18. VITAMIN B COMPLEX (BECOTIN) (VITAMIN B COMPLEX (BECOTIN) UNKNOWN FORMU [Concomitant]
  19. PREGABALIN (PREGABALIN) [Concomitant]
  20. BAYER CHILDREN'S ASPIRIN (ACETYSALICYLIC ACID) [Concomitant]
  21. ATENOLOL [Concomitant]
  22. ACIPHEX [Concomitant]
  23. CRESTOR [Concomitant]

REACTIONS (6)
  - ANOREXIA [None]
  - DIZZINESS [None]
  - FATIGUE [None]
  - NAUSEA [None]
  - PAROSMIA [None]
  - SLEEP DISORDER [None]
